FAERS Safety Report 26141900 (Version 2)
Quarter: 2025Q4

REPORT INFORMATION
  Report Type: Spontaneous
  Country: BR (occurrence: BR)
  Receive Date: 20251210
  Receipt Date: 20251217
  Transmission Date: 20260118
  Serious: Yes (Other)
  Sender: BIOMARIN
  Company Number: BR-BIOMARINAP-BR-2025-170540

PATIENT
  Age: 25 Year
  Sex: Male
  Weight: 32 kg

DRUGS (1)
  1. NAGLAZYME [Suspect]
     Active Substance: GALSULFASE
     Indication: Mucopolysaccharidosis VI
     Dosage: UNK, QW

REACTIONS (1)
  - Tracheostomy [Recovering/Resolving]

NARRATIVE: CASE EVENT DATE: 20251202
